FAERS Safety Report 7362014-1 (Version None)
Quarter: 2011Q1

REPORT INFORMATION
  Report Type: 
  Country: None (occurrence: None)
  Receive Date: 20110318
  Receipt Date: 20110311
  Transmission Date: 20110831
  Serious: Yes (Other)
  Sender: FDA-Public Use
  Company Number: FR-PFIZER INC-2011053893

PATIENT
  Sex: Male

DRUGS (1)
  1. GENOTONORM [Suspect]
     Dosage: UNK
     Dates: start: 20100901, end: 20101201

REACTIONS (1)
  - PULMONARY HYPERTENSION [None]
